FAERS Safety Report 9012748 (Version 1)
Quarter: 2013Q1

REPORT INFORMATION
  Report Type: Spontaneous
  Country: US (occurrence: US)
  Receive Date: 20130114
  Receipt Date: 20130114
  Transmission Date: 20140127
  Serious: Yes (Hospitalization, Other)
  Sender: FDA-Public Use
  Company Number: US-US-EMD SERONO, INC.-230644J08USA

PATIENT
  Age: 44 Year
  Sex: Female
  Weight: 55 kg

DRUGS (7)
  1. REBIF [Suspect]
     Indication: MULTIPLE SCLEROSIS
     Route: 058
     Dates: start: 20070107
  2. LEXAPRO [Concomitant]
     Indication: ANXIETY
     Route: 065
     Dates: start: 2006
  3. STOOL SOFTENER [Concomitant]
     Indication: CONSTIPATION
     Route: 065
     Dates: start: 2006
  4. CALTRATE [Concomitant]
     Route: 065
  5. BABY ASPIRIN [Concomitant]
     Route: 065
  6. VITAMIN C [Concomitant]
     Route: 065
  7. SOLU-MEDROL [Concomitant]
     Indication: NERVOUS SYSTEM DISORDER
     Route: 042
     Dates: start: 200712

REACTIONS (1)
  - Convulsion [Recovered/Resolved]
